FAERS Safety Report 5530800-6 (Version None)
Quarter: 2007Q4

REPORT INFORMATION
  Report Type: 
  Country: None (occurrence: None)
  Receive Date: 20071130
  Receipt Date: 20071121
  Transmission Date: 20080405
  Serious: Yes (Other)
  Sender: FDA-Public Use
  Company Number: JP-AVENTIS-200713173JP

PATIENT
  Sex: Female
  Weight: 53 kg

DRUGS (2)
  1. INSULIN GLARGINE [Suspect]
     Route: 058
     Dates: start: 20050101
  2. QUICK ACTING INSULIN [Concomitant]
     Dosage: FREQUENCY: BEFORE MEALS

REACTIONS (2)
  - ABORTION SPONTANEOUS [None]
  - DRUG EXPOSURE DURING PREGNANCY [None]
